FAERS Safety Report 6648253-3 (Version None)
Quarter: 2010Q1

REPORT INFORMATION
  Report Type: 
  Country: None (occurrence: None)
  Receive Date: 20100324
  Receipt Date: 20100312
  Transmission Date: 20100710
  Serious: Yes (Death)
  Sender: FDA-Public Use
  Company Number: JP-ROCHE-538895

PATIENT
  Age: 44 Year
  Sex: Male

DRUGS (33)
  1. BEVACIZUMAB [Suspect]
     Indication: COLON CANCER METASTATIC
     Route: 041
     Dates: start: 20071010, end: 20071010
  2. BEVACIZUMAB [Suspect]
     Route: 041
     Dates: start: 20071024, end: 20071024
  3. BEVACIZUMAB [Suspect]
     Route: 041
     Dates: start: 20071107, end: 20071107
  4. BEVACIZUMAB [Suspect]
     Route: 041
     Dates: start: 20071121, end: 20071121
  5. BEVACIZUMAB [Suspect]
     Route: 041
     Dates: start: 20071212, end: 20071212
  6. ELPLAT [Concomitant]
     Route: 041
     Dates: start: 20070801, end: 20070925
  7. ELPLAT [Concomitant]
     Route: 041
     Dates: start: 20071010, end: 20071010
  8. ELPLAT [Concomitant]
     Route: 041
     Dates: start: 20071024, end: 20071024
  9. ELPLAT [Concomitant]
     Route: 041
     Dates: start: 20071107, end: 20071107
  10. ELPLAT [Concomitant]
     Route: 041
     Dates: start: 20071121, end: 20071121
  11. ELPLAT [Concomitant]
     Route: 041
     Dates: start: 20071212, end: 20071212
  12. FLUOROURACIL [Concomitant]
     Dosage: INTRAVENOUS BOLUS.
     Route: 042
     Dates: start: 20070801, end: 20070925
  13. FLUOROURACIL [Concomitant]
     Dosage: INTRAVENOUS DRIP.
     Route: 042
     Dates: start: 20070801, end: 20070927
  14. FLUOROURACIL [Concomitant]
     Dosage: INTRAVENOUS BOLUS.
     Route: 042
     Dates: start: 20071010, end: 20071010
  15. FLUOROURACIL [Concomitant]
     Dosage: INTRAVENOUS DRIP
     Route: 042
     Dates: start: 20071010, end: 20071012
  16. FLUOROURACIL [Concomitant]
     Dosage: INTRAVENOUS BOLUS.
     Route: 042
     Dates: start: 20071024, end: 20071024
  17. FLUOROURACIL [Concomitant]
     Dosage: INTRAVENOUS DRIP
     Route: 042
     Dates: start: 20071024, end: 20071026
  18. FLUOROURACIL [Concomitant]
     Dosage: INTRAVENOUS BOLUS
     Route: 042
     Dates: start: 20071107, end: 20071107
  19. FLUOROURACIL [Concomitant]
     Dosage: INTRAVENOUS DRIP
     Route: 042
     Dates: start: 20071107, end: 20071109
  20. FLUOROURACIL [Concomitant]
     Dosage: INTRAVENOUS BOLUS
     Route: 042
     Dates: start: 20071121, end: 20071121
  21. FLUOROURACIL [Concomitant]
     Dosage: INTRAVENOUS DRIP.
     Route: 042
     Dates: start: 20071121, end: 20071123
  22. FLUOROURACIL [Concomitant]
     Dosage: INTRAVENOUS BOLUS
     Route: 042
     Dates: start: 20071212, end: 20071212
  23. FLUOROURACIL [Concomitant]
     Dosage: INTRAVENOUS DRIP
     Route: 042
     Dates: start: 20071212, end: 20071214
  24. ISOVORIN [Concomitant]
     Route: 041
     Dates: start: 20070801, end: 20070925
  25. ISOVORIN [Concomitant]
     Route: 041
     Dates: start: 20071010, end: 20071010
  26. ISOVORIN [Concomitant]
     Route: 041
     Dates: start: 20071024, end: 20071024
  27. ISOVORIN [Concomitant]
     Route: 041
     Dates: start: 20071107, end: 20071107
  28. ISOVORIN [Concomitant]
     Route: 041
     Dates: start: 20071121, end: 20071121
  29. ISOVORIN [Concomitant]
     Route: 041
     Dates: start: 20071212, end: 20071212
  30. KYTRIL [Concomitant]
     Dosage: DRUG REPORTED AS KYTRIL 3 MG BAG.
     Route: 041
  31. DECADRON [Concomitant]
     Route: 041
  32. PARIET [Concomitant]
     Route: 048
     Dates: start: 20071010, end: 20071226
  33. GASMOTIN [Concomitant]
     Route: 048
     Dates: start: 20071010, end: 20071226

REACTIONS (2)
  - CEREBRAL INFARCTION [None]
  - DISSEMINATED INTRAVASCULAR COAGULATION [None]
